FAERS Safety Report 7967652-0 (Version None)
Quarter: 2011Q4

REPORT INFORMATION
  Report Type: 
  Country: None (occurrence: None)
  Receive Date: 20111209
  Receipt Date: 20111202
  Transmission Date: 20120403
  Serious: Yes (Other)
  Sender: FDA-Public Use
  Company Number: DE-AMGEN-DEUCT2011065077

PATIENT
  Sex: Female

DRUGS (6)
  1. URBASON                            /00049601/ [Concomitant]
     Dosage: 4 MG, UNK
  2. METOPROLOL SUCCINATE [Concomitant]
     Dosage: 1 DF, 1X/DAY
  3. HYDROXYCHLOROQUINE [Concomitant]
     Dosage: UNK
     Dates: start: 19990101, end: 20091201
  4. ETANERCEPT [Suspect]
     Indication: PRODUCT USED FOR UNKNOWN INDICATION
     Dosage: UNK
     Dates: start: 20090501, end: 20100401
  5. PANTOPRAZOLE [Concomitant]
     Dosage: 40 MG, AS NEEDED
  6. ETANERCEPT [Suspect]
     Dosage: UNK
     Dates: start: 20110201, end: 20110501

REACTIONS (2)
  - RASH PUSTULAR [None]
  - SWOLLEN TONGUE [None]
